FAERS Safety Report 8847096 (Version 1)
Quarter: 2012Q4

REPORT INFORMATION
  Report Type: Spontaneous
  Country: CA (occurrence: None)
  Receive Date: 20121016
  Receipt Date: 20121016
  Transmission Date: 20130627
  Serious: Yes (Hospitalization)
  Sender: FDA-Public Use
  Company Number: DSU-2012-08128

PATIENT
  Sex: Female

DRUGS (1)
  1. OLMETEC PLUS [Suspect]
     Indication: DRUG USE FOR UNKNOWN INDICATION
     Route: 048

REACTIONS (7)
  - Biliary cirrhosis [None]
  - Blood disorder [None]
  - Renal impairment [None]
  - Cough [None]
  - Diarrhoea [None]
  - Dizziness [None]
  - Increased bronchial secretion [None]
